FAERS Safety Report 23068781 (Version 2)
Quarter: 2024Q1

REPORT INFORMATION
  Report Type: Spontaneous
  Country: NZ (occurrence: NZ)
  Receive Date: 20231016
  Receipt Date: 20240118
  Transmission Date: 20240410
  Serious: Yes (Other)
  Sender: FDA-Public Use
  Company Number: NZ-MYLANLABS-2023M1107185

PATIENT
  Sex: Male
  Weight: 143.2 kg

DRUGS (15)
  1. CLOZARIL [Suspect]
     Active Substance: CLOZAPINE
     Indication: Schizophrenia
     Dosage: UNK
     Route: 048
     Dates: start: 20130905, end: 20230915
  2. CLOZARIL [Suspect]
     Active Substance: CLOZAPINE
     Indication: Psychotic disorder
     Dosage: 225 MILLIGRAM, QD (NOCTE)
     Route: 048
     Dates: start: 2012, end: 20230915
  3. TRULICITY [Suspect]
     Active Substance: DULAGLUTIDE
     Indication: Obesity
     Dosage: 1.5 MILLIGRAM, QW
     Route: 065
     Dates: start: 20230608, end: 20230915
  4. TRULICITY [Suspect]
     Active Substance: DULAGLUTIDE
     Indication: Type 2 diabetes mellitus
  5. EMPAGLIFLOZIN [Suspect]
     Active Substance: EMPAGLIFLOZIN
     Indication: Obesity
     Dosage: 25 MILLIGRAM, QD
     Route: 048
     Dates: start: 20230601, end: 20230915
  6. EMPAGLIFLOZIN [Suspect]
     Active Substance: EMPAGLIFLOZIN
     Indication: Type 2 diabetes mellitus
  7. AZITHROMYCIN [Concomitant]
     Active Substance: AZITHROMYCIN
     Indication: Chronic obstructive pulmonary disease
     Dosage: 500 MILLIGRAM (3 DAYS PER WEEK)
     Route: 048
     Dates: start: 20220202
  8. SERTRALINE [Concomitant]
     Active Substance: SERTRALINE HYDROCHLORIDE
     Indication: Paraphilia
     Dosage: 200 MILLIGRAM, QD
     Route: 048
     Dates: start: 20200827
  9. ALLOPURINOL [Concomitant]
     Active Substance: ALLOPURINOL
     Indication: Gout
     Dosage: 200 MILLIGRAM, (200 MG MANE)
     Route: 048
     Dates: start: 20200827
  10. QUINAPRIL [Concomitant]
     Active Substance: QUINAPRIL
     Indication: Hypertension
     Dosage: 200 MILLIGRAM, (200 MG MANE)
     Route: 048
     Dates: start: 20200827
  11. TAMSULOSIN [Concomitant]
     Active Substance: TAMSULOSIN
     Indication: Prostatism
     Dosage: 400 MICROGRAM, (400MCH MANE)
     Route: 048
     Dates: start: 20230702
  12. SOLIFENACIN [Concomitant]
     Active Substance: SOLIFENACIN
     Indication: Prostatism
     Dosage: 5 MILLIGRAM, BID
     Route: 048
     Dates: start: 20230702
  13. BREO ELLIPTA [Concomitant]
     Active Substance: FLUTICASONE FUROATE\VILANTEROL TRIFENATATE
     Indication: Chronic obstructive pulmonary disease
     Dosage: UNK, (100-25 MCG MANE)
     Route: 055
     Dates: start: 20200727
  14. SENNOSIDES [Concomitant]
     Active Substance: SENNOSIDES
     Indication: Constipation
     Dosage: 15 MILLIGRAM, QD
     Route: 048
     Dates: start: 20230323
  15. RISPERIDONE [Concomitant]
     Active Substance: RISPERIDONE
     Indication: Psychotic disorder
     Dosage: 1.5 MILLIGRAM, QD
     Route: 048
     Dates: start: 20230915

REACTIONS (1)
  - Intestinal obstruction [Recovered/Resolved]
